FAERS Safety Report 19740567 (Version 2)
Quarter: 2021Q4

REPORT INFORMATION
  Report Type: Spontaneous
  Country: CN (occurrence: CN)
  Receive Date: 20210824
  Receipt Date: 20211007
  Transmission Date: 20220304
  Serious: Yes (Other)
  Sender: FDA-Public Use
  Company Number: CN-MLMSERVICE-20210804-3034397-1

PATIENT
  Age: 60 Year
  Sex: Male

DRUGS (7)
  1. METHYLPREDNISOLONE [Suspect]
     Active Substance: METHYLPREDNISOLONE
     Indication: Pemphigus
     Dosage: 60 MG, 1X/DAY (HIGH-DOSE GLUCOCORTICOIDS)
  2. PREDNISONE [Suspect]
     Active Substance: PREDNISONE
     Indication: Pemphigus
     Dosage: TAPERING OF PREDNISONE TO BELOW 25 MG/DAY
  3. PREDNISONE [Suspect]
     Active Substance: PREDNISONE
     Dosage: 25 MG, 1X/DAY
  4. PREDNISONE [Suspect]
     Active Substance: PREDNISONE
     Dosage: 10 MG, 1X/DAY TAPERED TO 10 MG/DAY
  5. PREDNISONE [Suspect]
     Active Substance: PREDNISONE
     Dosage: 7.5 MG, 1X/DAY DECREASED TO 7.5 MG/DAY
  6. ALDESLEUKIN [Concomitant]
     Active Substance: ALDESLEUKIN
     Indication: Pemphigus
     Dosage: 800,000 IU EVERY OTHER DAY FOR 7 TIMES, FOLLOWED BY A BREAK OF 2 WEEKS
     Route: 058
  7. CYCLOPHOSPHAMIDE [Concomitant]
     Active Substance: CYCLOPHOSPHAMIDE
     Indication: Pemphigus
     Dosage: UNK

REACTIONS (6)
  - Hyperglycaemia [Unknown]
  - Cataract [Unknown]
  - Osteoporosis [Unknown]
  - Hyperlipidaemia [Unknown]
  - Hypertension [Unknown]
  - Obesity [Unknown]
